FAERS Safety Report 12817998 (Version 1)
Quarter: 2016Q4

REPORT INFORMATION
  Report Type: Spontaneous
  Country: US (occurrence: US)
  Receive Date: 20161005
  Receipt Date: 20161005
  Transmission Date: 20170207
  Serious: Yes (Other)
  Sender: FDA-Public Use
  Company Number: US-LUNDBECK-DKLU2020346

PATIENT
  Age: 40 Year
  Sex: Female

DRUGS (1)
  1. NORTHERA [Suspect]
     Active Substance: DROXIDOPA
     Indication: PRODUCT USED FOR UNKNOWN INDICATION
     Route: 065
     Dates: start: 20160824

REACTIONS (5)
  - Dysphagia [Unknown]
  - Upper respiratory tract infection [Recovered/Resolved]
  - Swollen tongue [Unknown]
  - Urinary tract infection [Unknown]
  - Bone abscess [Recovered/Resolved]

NARRATIVE: CASE EVENT DATE: 2016
